FAERS Safety Report 6033515-3 (Version None)
Quarter: 2009Q1

REPORT INFORMATION
  Report Type: 
  Country: None (occurrence: None)
  Receive Date: 20090109
  Receipt Date: 20090106
  Transmission Date: 20090719
  Serious: Yes (Hospitalization, Other)
  Sender: FDA-Public Use
  Company Number: US-B.I. PHARMACEUTICALS,INC./RIDGEFIELD-2009-BP-00173BP

PATIENT
  Sex: Female

DRUGS (13)
  1. SPIRIVA [Suspect]
     Indication: CHRONIC OBSTRUCTIVE PULMONARY DISEASE
     Dosage: 18MCG
     Route: 055
  2. SPIRIVA [Suspect]
     Indication: DYSPNOEA
  3. ASMANEX TWISTHALER [Concomitant]
  4. ALBUTEROL [Concomitant]
  5. CAPATRIL [Concomitant]
  6. METOPROLOL TARTRATE [Concomitant]
  7. DIGOXIN [Concomitant]
  8. ALLOPURINOL [Concomitant]
  9. FUROSEMIDE [Concomitant]
  10. KLOR-CON [Concomitant]
  11. PREDNISONE TAB [Concomitant]
  12. NEXIUM [Concomitant]
  13. JANTOVEN [Concomitant]

REACTIONS (4)
  - APPETITE DISORDER [None]
  - ARTHRITIS [None]
  - CATARACT [None]
  - WEIGHT DECREASED [None]
